FAERS Safety Report 21660552 (Version 1)
Quarter: 2022Q4

REPORT INFORMATION
  Report Type: Spontaneous
  Country: FR (occurrence: None)
  Receive Date: 20221130
  Receipt Date: 20221130
  Transmission Date: 20230113
  Serious: Yes (Life-Threatening)
  Sender: FDA-Public Use
  Company Number: FR-Orion Corporation ORION PHARMA-TREX2022-0245

PATIENT
  Age: 71 Year
  Sex: Female

DRUGS (18)
  1. METHOTREXATE SODIUM [Suspect]
     Active Substance: METHOTREXATE SODIUM
     Indication: Rheumatoid arthritis
     Dosage: STRENGTH: 10 MG?DOSE TAKEN ON THURSDAY
     Route: 048
     Dates: start: 201311, end: 202208
  2. METHOTREXATE SODIUM [Suspect]
     Active Substance: METHOTREXATE SODIUM
     Route: 048
  3. HUMIRA [Concomitant]
     Active Substance: ADALIMUMAB
     Dosage: STRENGTH: 40 MG
     Route: 065
     Dates: start: 201404, end: 201410
  4. ORENCIA [Concomitant]
     Active Substance: ABATACEPT
     Dosage: STRENGTH: 250 MG?IN 30 MINUTES, WITH 4 WEEKS OF INTERCOURSE INTERVAL.
     Route: 065
     Dates: start: 20160706, end: 20161026
  5. ORENCIA [Concomitant]
     Active Substance: ABATACEPT
     Route: 065
     Dates: start: 20161026, end: 20220505
  6. ORENCIA [Concomitant]
     Active Substance: ABATACEPT
     Dosage: IN 30 MINUTES IN DAY
     Route: 042
     Dates: start: 20220406
  7. ORENCIA [Concomitant]
     Active Substance: ABATACEPT
     Dosage: PATIENT WENT IN DAY HOSPITAL TO RECEIVE ABATACEPT INFUSION
     Route: 065
     Dates: start: 20220505
  8. TOCILIZUMAB [Concomitant]
     Active Substance: TOCILIZUMAB
     Dosage: STRENGTH: 20 MG/ML
     Route: 065
     Dates: start: 201411, end: 201606
  9. PREDNISONE [Concomitant]
     Active Substance: PREDNISONE
     Indication: Rheumatoid arthritis
     Route: 048
     Dates: start: 201311
  10. PREDNISONE [Concomitant]
     Active Substance: PREDNISONE
     Route: 048
     Dates: start: 201404, end: 201410
  11. PREDNISONE [Concomitant]
     Active Substance: PREDNISONE
     Route: 048
     Dates: start: 201411, end: 201606
  12. PREDNISONE [Concomitant]
     Active Substance: PREDNISONE
     Route: 048
     Dates: start: 201607
  13. NEBIVOLOL [Concomitant]
     Active Substance: NEBIVOLOL
     Route: 065
  14. PREGABALIN [Concomitant]
     Active Substance: PREGABALIN
     Route: 065
  15. TRAMADOL [Concomitant]
     Active Substance: TRAMADOL
     Route: 065
  16. FOLIC ACID [Concomitant]
     Active Substance: FOLIC ACID
     Route: 065
  17. DOXYLAMINE [Concomitant]
     Active Substance: DOXYLAMINE
     Route: 065
  18. PROLIA [Concomitant]
     Active Substance: DENOSUMAB
     Route: 065

REACTIONS (1)
  - Progressive multifocal leukoencephalopathy [Not Recovered/Not Resolved]

NARRATIVE: CASE EVENT DATE: 20220701
